FAERS Safety Report 9833595 (Version 2)
Quarter: 2014Q1

REPORT INFORMATION
  Report Type: Spontaneous
  Country: US (occurrence: US)
  Receive Date: 20140122
  Receipt Date: 20140319
  Transmission Date: 20141002
  Serious: No
  Sender: FDA-Public Use
  Company Number: US-BIOGENIDEC-2014BI005450

PATIENT
  Age: 51 Year
  Sex: Female

DRUGS (1)
  1. TYSABRI [Suspect]
     Indication: MULTIPLE SCLEROSIS
     Route: 042
     Dates: start: 20131115, end: 20140110

REACTIONS (7)
  - Adverse reaction [Unknown]
  - Hypersensitivity [Recovered/Resolved]
  - Panic reaction [Unknown]
  - Frustration [Unknown]
  - Choking [Unknown]
  - Nervousness [Unknown]
  - Adverse drug reaction [Unknown]
